FAERS Safety Report 15840437 (Version 1)
Quarter: 2019Q1

REPORT INFORMATION
  Report Type: Spontaneous
  Country: NL (occurrence: NL)
  Receive Date: 20190118
  Receipt Date: 20190118
  Transmission Date: 20190417
  Serious: Yes (Other)
  Sender: FDA-Public Use
  Company Number: NL-SUN PHARMACEUTICAL INDUSTRIES LTD-2019RR-196200

PATIENT
  Age: 66 Year
  Sex: Male
  Weight: 75 kg

DRUGS (3)
  1. TAMOXIFEN TABLET, 20 MG (MILLIGRAM) [Suspect]
     Active Substance: TAMOXIFEN
     Indication: GYNAECOMASTIA
     Dosage: 1X PER 2 DAGEN
     Route: 050
     Dates: start: 20181017, end: 20181207
  2. CARBASALAATCALCIUM ZAKJE (POEDER), 100 MG (MILLIGRAM) [Suspect]
     Active Substance: CARBASPIRIN CALCIUM
     Indication: TRANSIENT ISCHAEMIC ATTACK
     Dosage: 1X DAAGS 1 STUK
     Route: 050
     Dates: start: 20150404
  3. BICALUTAMIDE. [Suspect]
     Active Substance: BICALUTAMIDE
     Indication: PROSTATE CANCER
     Dosage: ()
     Route: 050
     Dates: start: 20180306

REACTIONS (2)
  - Transient ischaemic attack [Recovered/Resolved]
  - Pulmonary embolism [Recovering/Resolving]

NARRATIVE: CASE EVENT DATE: 20181129
